FAERS Safety Report 8923217 (Version 1)
Quarter: 2012Q4

REPORT INFORMATION
  Report Type: Report from Study
  Country: DE (occurrence: DE)
  Receive Date: 20121123
  Receipt Date: 20121123
  Transmission Date: 20130627
  Serious: Yes (Hospitalization)
  Sender: FDA-Public Use
  Company Number: PHHO2012DE016537

PATIENT
  Age: 74 Year
  Sex: Male
  Weight: 87 kg

DRUGS (7)
  1. ACZ885 [Suspect]
     Indication: CARDIOVASCULAR EVENT PROPHYLAXIS
     Dosage: double blinded
     Route: 058
     Dates: start: 20120821, end: 20120905
  2. PHENPROCOUMON [Suspect]
     Indication: PROPHYLAXIS
     Dosage: INR 2-3
     Dates: start: 20120925, end: 20121108
  3. CLOPIDOGREL [Suspect]
     Indication: CORONARY ARTERY DISEASE
     Dosage: 75 mg,
     Dates: start: 201203, end: 20121108
  4. TORASEMIDE [Concomitant]
     Indication: CARDIAC FAILURE CHRONIC
     Dosage: 10 mg, QD
     Dates: start: 201203
  5. BISOPROLOL [Concomitant]
     Indication: CORONARY ARTERY DISEASE
     Dosage: 5 mg, QD
     Dates: start: 201203
  6. EPLERENONE [Concomitant]
     Indication: CARDIAC FAILURE CHRONIC
     Dosage: 25 mg, QD
     Dates: start: 201203
  7. LOSARTAN [Concomitant]
     Indication: CARDIAC FAILURE CHRONIC
     Dosage: 50 mg, QD
     Dates: start: 201203

REACTIONS (1)
  - Epistaxis [Unknown]
